FAERS Safety Report 13990858 (Version 1)
Quarter: 2017Q3

REPORT INFORMATION
  Report Type: Spontaneous
  Country: US (occurrence: US)
  Receive Date: 20170920
  Receipt Date: 20170920
  Transmission Date: 20171128
  Serious: Yes (Other)
  Sender: FDA-Public Use
  Company Number: US-ASTELLAS-2017US028357

PATIENT
  Sex: Female

DRUGS (5)
  1. TARCEVA [Suspect]
     Active Substance: ERLOTINIB HYDROCHLORIDE
     Dosage: 100 MG, ONCE DAILY
     Route: 048
     Dates: start: 20150305
  2. TARCEVA [Suspect]
     Active Substance: ERLOTINIB HYDROCHLORIDE
     Indication: LUNG NEOPLASM MALIGNANT
     Route: 048
     Dates: start: 20150227
  3. TARCEVA [Suspect]
     Active Substance: ERLOTINIB HYDROCHLORIDE
     Dosage: 30 MG, ONCE DAILY
     Route: 048
     Dates: start: 20150303
  4. TARCEVA [Suspect]
     Active Substance: ERLOTINIB HYDROCHLORIDE
     Dosage: 100 MG, ONCE DAILY
     Route: 048
     Dates: start: 20160205
  5. DEPAKOTE [Concomitant]
     Active Substance: DIVALPROEX SODIUM
     Indication: PRODUCT USED FOR UNKNOWN INDICATION
     Dosage: UNK, UNKNOWN FREQ.
     Route: 065

REACTIONS (15)
  - Dry eye [Unknown]
  - Dry skin [Unknown]
  - Rash pruritic [Unknown]
  - Pruritus [Unknown]
  - Musculoskeletal chest pain [Unknown]
  - Diarrhoea [Unknown]
  - Headache [Unknown]
  - Skin fissures [Unknown]
  - Urticaria [Unknown]
  - Rash pustular [Unknown]
  - Arthralgia [Unknown]
  - Rash [Unknown]
  - Glaucoma [Unknown]
  - Pain [Unknown]
  - Fatigue [Unknown]
